FAERS Safety Report 9343194 (Version 1)
Quarter: 2013Q2

REPORT INFORMATION
  Report Type: Spontaneous
  Country: US (occurrence: US)
  Receive Date: 20130611
  Receipt Date: 20130611
  Transmission Date: 20140414
  Serious: No
  Sender: FDA-Public Use
  Company Number: US-PFIZER INC-2013172119

PATIENT
  Age: 65 Year
  Sex: Male
  Weight: 90.7 kg

DRUGS (2)
  1. LATANOPROST [Suspect]
     Indication: GLAUCOMA
     Dosage: 1 GTT, 1X/DAY
  2. LATANOPROST [Suspect]
     Indication: INTRAOCULAR PRESSURE INCREASED

REACTIONS (1)
  - Drug ineffective [Unknown]
